FAERS Safety Report 23645047 (Version 1)
Quarter: 2024Q1

REPORT INFORMATION
  Report Type: Spontaneous
  Country: US (occurrence: US)
  Receive Date: 20240318
  Receipt Date: 20240318
  Transmission Date: 20240409
  Serious: No
  Sender: FDA-Public Use
  Company Number: US-SMITH AND NEPHEW, INC-2023SMT00036

PATIENT
  Sex: Female
  Weight: 86.168 kg

DRUGS (1)
  1. COLLAGENASE SANTYL [Suspect]
     Active Substance: COLLAGENASE CLOSTRIDIUM HISTOLYTICUM
     Indication: Ulcer
     Dosage: UNK, 1X/DAY TO LEFT LEG
     Route: 061
     Dates: start: 20220113

REACTIONS (3)
  - Wound complication [Recovering/Resolving]
  - Pruritus [Recovered/Resolved]
  - Impaired healing [Unknown]

NARRATIVE: CASE EVENT DATE: 20230501
